FAERS Safety Report 8820172 (Version 1)
Quarter: 2012Q4

REPORT INFORMATION
  Report Type: 
  Country: IL (occurrence: IL)
  Receive Date: 20121002
  Receipt Date: 20121002
  Transmission Date: 20130627
  Serious: Yes (Hospitalization, Other)
  Sender: FDA-Public Use
  Company Number: PHHO2011IL15669

PATIENT
  Age: 82 Year
  Sex: Male
  Weight: 60.8 kg

DRUGS (15)
  1. BLINDED ENALAPRIL [Suspect]
     Indication: CARDIAC FAILURE CHRONIC
     Dosage: Double blinded
     Route: 048
     Dates: start: 20100810
  2. BLINDED LCZ696 [Suspect]
     Indication: CARDIAC FAILURE CHRONIC
     Dosage: Double blinded
     Route: 048
     Dates: start: 20100810
  3. BLINDED NO TREATMENT RECEIVED [Suspect]
     Indication: CARDIAC FAILURE CHRONIC
     Dosage: Double blinded
     Route: 048
     Dates: start: 20100810
  4. CARDILOC [Concomitant]
     Indication: CARDIAC FAILURE CHRONIC
     Dosage: 1.25 mg, QD
  5. NOVONORM [Concomitant]
     Indication: DIABETES MELLITUS
     Dosage: 0.5 mg, BID
     Dates: start: 20090311
  6. FUSID [Concomitant]
     Indication: CARDIAC FAILURE CHRONIC
     Dosage: 40 mg, BID
     Dates: start: 2003
  7. CLOPIDOGREL [Concomitant]
     Indication: CORONARY ANGIOPLASTY
     Dosage: 75 mg, QD
     Dates: start: 20110724
  8. LIPIDAL [Concomitant]
     Indication: HYPERLIPIDAEMIA
     Dosage: 40 mg, QD
     Dates: start: 20020906
  9. BONSERIN [Concomitant]
     Indication: DEPRESSION
     Dosage: 0.250 mg, QD
     Dates: start: 20040217
  10. HYDROCHLOROTHIAZIDE [Concomitant]
     Indication: HYPERTENSION
     Dosage: 12.5 mg, QD
  11. HYDROCHLOROTHIAZIDE [Concomitant]
     Indication: CARDIAC FAILURE CHRONIC
  12. MICROPIRIN [Concomitant]
     Indication: MYOCARDIAL ISCHAEMIA
     Dosage: 100 mg, QD
     Dates: start: 20020716
  13. CLONEX [Concomitant]
     Indication: DEPRESSION
     Dosage: UNK
  14. LOSARTAN [Concomitant]
     Indication: HYPERTENSION
     Dosage: 50 mg, QD
  15. LOSARTAN [Concomitant]
     Indication: CARDIAC FAILURE CHRONIC

REACTIONS (3)
  - Atrial flutter [Recovering/Resolving]
  - Chest pain [Recovered/Resolved]
  - Disease progression [Recovering/Resolving]
